FAERS Safety Report 7254721-6 (Version None)
Quarter: 2011Q1

REPORT INFORMATION
  Report Type: 
  Country: None (occurrence: None)
  Receive Date: 20110129
  Receipt Date: 20100405
  Transmission Date: 20110831
  Serious: No
  Sender: FDA-Public Use
  Company Number: US-ABBOTT-10P-163-0636867-00

PATIENT
  Sex: Female
  Weight: 51.756 kg

DRUGS (7)
  1. TYLENOL-500 [Concomitant]
     Indication: PAIN
  2. NEBUMATOME [Concomitant]
     Indication: RHEUMATOID ARTHRITIS
  3. FISH OIL [Concomitant]
     Indication: SUPPLEMENTATION THERAPY
  4. HUMIRA [Suspect]
     Indication: RHEUMATOID ARTHRITIS
  5. PREDNISONE [Concomitant]
     Indication: RHEUMATOID ARTHRITIS
  6. LISINOPRIL [Concomitant]
     Indication: HYPERTENSION
  7. FOLIC ACID [Concomitant]
     Indication: RHEUMATOID ARTHRITIS

REACTIONS (3)
  - DRUG EFFECT DECREASED [None]
  - BONE PAIN [None]
  - MUSCULOSKELETAL STIFFNESS [None]
